FAERS Safety Report 5207150-0 (Version None)
Quarter: 2007Q1

REPORT INFORMATION
  Report Type: 
  Country: None (occurrence: None)
  Receive Date: 20070112
  Receipt Date: 20070108
  Transmission Date: 20070707
  Serious: Yes (Hospitalization)
  Sender: FDA-Public Use
  Company Number: AU-ROCHE-477415

PATIENT
  Age: 24 Month
  Sex: Male
  Weight: 16 kg

DRUGS (8)
  1. CEFTRIAXONE SODIUM [Suspect]
     Route: 042
  2. CEFTRIAXONE SODIUM [Suspect]
     Route: 042
     Dates: start: 20060829, end: 20060905
  3. ACYCLOVIR [Concomitant]
     Route: 042
     Dates: start: 20060831, end: 20060906
  4. PHENOBARBITONE [Concomitant]
     Dosage: FREQUENCY REPORTED AS 2 TIMES.
     Route: 042
     Dates: start: 20060831, end: 20060911
  5. MIDAZOLAM HYDROCHLORIDE [Concomitant]
     Dosage: DOSING AMOUNT REPORTED AS 1 DOSE UNSPECIFIED.
     Route: 042
     Dates: start: 20060903, end: 20060903
  6. DILANTIN [Concomitant]
     Route: 042
     Dates: start: 20060831, end: 20060906
  7. ACETAMINOPHEN [Concomitant]
     Dosage: FORM REPORTED AS ORAL LIQUID.
     Route: 048
     Dates: start: 20060828, end: 20060910
  8. IBUPROFEN [Concomitant]
     Dosage: FORM REPORTED AS ORAL LIQUID.
     Route: 048
     Dates: start: 20060828, end: 20060908

REACTIONS (1)
  - LIVER FUNCTION TEST ABNORMAL [None]
